FAERS Safety Report 7007245-5 (Version None)
Quarter: 2010Q3

REPORT INFORMATION
  Report Type: 
  Country: None (occurrence: None)
  Receive Date: 20100922
  Receipt Date: 20100916
  Transmission Date: 20110219
  Serious: Yes (Hospitalization, Disabling)
  Sender: FDA-Public Use
  Company Number: RU-BAYER-201038286GPV

PATIENT
  Age: 81 Year
  Sex: Male
  Weight: 67 kg

DRUGS (3)
  1. SORAFENIB [Suspect]
     Indication: HEPATIC NEOPLASM MALIGNANT
     Route: 048
     Dates: start: 20100514, end: 20100823
  2. SORAFENIB [Suspect]
     Route: 048
     Dates: start: 20100827
  3. NIFEDIPINE [Suspect]
     Indication: HYPERTENSION
     Route: 065
     Dates: start: 20090601, end: 20100823

REACTIONS (2)
  - DISORIENTATION [None]
  - ENCEPHALOPATHY [None]
